FAERS Safety Report 9646184 (Version 1)
Quarter: 2013Q4

REPORT INFORMATION
  Report Type: Spontaneous
  Country: TW (occurrence: TW)
  Receive Date: 20131025
  Receipt Date: 20131025
  Transmission Date: 20140711
  Serious: Yes (Hospitalization, Other)
  Sender: FDA-Public Use
  Company Number: PHHY2013TW120453

PATIENT
  Age: 64 Year
  Sex: Female

DRUGS (1)
  1. DICLOFENAC [Suspect]
     Indication: BACK PAIN
     Dosage: 50 MG, TID (FOR MORE THAN TWO YEARS)

REACTIONS (35)
  - Septic shock [Unknown]
  - Acute respiratory failure [Unknown]
  - Oxygen saturation decreased [Unknown]
  - Renal failure acute [Unknown]
  - Hyperkalaemia [Unknown]
  - Blood urea increased [Unknown]
  - Blood creatinine increased [Unknown]
  - Renal abscess [Recovering/Resolving]
  - Klebsiella infection [Recovering/Resolving]
  - Colitis [Unknown]
  - Necrotising colitis [Unknown]
  - Gastrointestinal oedema [Unknown]
  - Gastrointestinal inflammation [Unknown]
  - Large intestinal ulcer [Unknown]
  - Metabolic acidosis [Unknown]
  - Blood lactic acid increased [Unknown]
  - C-reactive protein increased [Unknown]
  - Splenic abscess [Recovering/Resolving]
  - Blood pressure decreased [Unknown]
  - Ileal ulcer [Unknown]
  - White blood cell count increased [Unknown]
  - Neutrophil count increased [Unknown]
  - Micturition urgency [Unknown]
  - Malaise [Unknown]
  - Heart rate increased [Unknown]
  - Respiratory rate increased [Unknown]
  - Platelet count increased [Unknown]
  - Haematuria [Unknown]
  - Melanosis coli [Unknown]
  - Pollakiuria [Unknown]
  - Decreased appetite [Unknown]
  - Nausea [Unknown]
  - Dyspnoea [Unknown]
  - Somnolence [Unknown]
  - Haemorrhoids [Unknown]
